FAERS Safety Report 8292436 (Version 6)
Quarter: 2014Q1

REPORT INFORMATION
  Report Type: Spontaneous
  Country: US (occurrence: US)
  Receive Date: 20111215
  Receipt Date: 20140124
  Transmission Date: 20141002
  Serious: Yes (Hospitalization)
  Sender: FDA-Public Use
  Company Number: US-JNJFOC-20111203862

PATIENT
  Sex: Male
  Weight: 72.58 kg

DRUGS (10)
  1. LEVAQUIN [Suspect]
     Indication: INFECTION PROPHYLAXIS
     Route: 048
  2. LEVAQUIN [Suspect]
     Indication: INFECTION PROPHYLAXIS
     Route: 048
     Dates: start: 201001, end: 20111109
  3. LEVAQUIN [Suspect]
     Indication: INFECTION
     Route: 042
     Dates: start: 200912
  4. LASIX [Concomitant]
     Indication: LOCAL SWELLING
     Dosage: IN AM
     Route: 048
  5. LASIX [Concomitant]
     Indication: LOCAL SWELLING
     Dosage: IN PM
     Route: 048
  6. MULTIVITAMINS [Concomitant]
     Indication: NUTRITIONAL SUPPLEMENTATION
     Route: 048
  7. DIGOXIN [Concomitant]
     Indication: CARDIAC DISORDER
     Route: 048
  8. SIMVASTATIN [Concomitant]
     Indication: BLOOD CHOLESTEROL
     Route: 048
  9. FLOMAX [Concomitant]
     Indication: PROSTATIC DISORDER
     Route: 048
  10. COREG [Concomitant]
     Indication: CARDIAC DISORDER
     Route: 048

REACTIONS (6)
  - Periprosthetic fracture [Unknown]
  - Osteomyelitis [Not Recovered/Not Resolved]
  - Drug ineffective [Not Recovered/Not Resolved]
  - Infection masked [Not Recovered/Not Resolved]
  - Hypothyroidism [Not Recovered/Not Resolved]
  - Gastrointestinal polyp haemorrhage [Unknown]
